FAERS Safety Report 20791661 (Version 1)
Quarter: 2022Q2

REPORT INFORMATION
  Report Type: Spontaneous
  Country: HK (occurrence: HK)
  Receive Date: 20220505
  Receipt Date: 20220505
  Transmission Date: 20220721
  Serious: Yes (Other)
  Sender: FDA-Public Use
  Company Number: HK-NOVARTISPH-NVSC2022HK098687

PATIENT
  Age: 74 Year
  Sex: Male

DRUGS (1)
  1. LUTETIUM OXODOTREOTIDE LU-177 [Suspect]
     Active Substance: LUTETIUM OXODOTREOTIDE LU-177
     Indication: Gastroenteropancreatic neuroendocrine tumour disease
     Dosage: UNK
     Route: 065

REACTIONS (9)
  - Gastroenteropancreatic neuroendocrine tumour disease [Unknown]
  - Malignant neoplasm progression [Unknown]
  - Metastasis [Unknown]
  - Myelosuppression [Unknown]
  - Carcinoid syndrome [Not Recovered/Not Resolved]
  - Condition aggravated [Not Recovered/Not Resolved]
  - Asthenia [Unknown]
  - Abdominal pain [Unknown]
  - Intentional product use issue [Unknown]

NARRATIVE: CASE EVENT DATE: 20180601
